FAERS Safety Report 7288720-5 (Version None)
Quarter: 2011Q1

REPORT INFORMATION
  Report Type: 
  Country: None (occurrence: None)
  Receive Date: 20110211
  Receipt Date: 20110207
  Transmission Date: 20110831
  Serious: Yes (Life-Threatening)
  Sender: FDA-Public Use
  Company Number: PHHY2011US09801

PATIENT
  Sex: Female

DRUGS (4)
  1. ATIVAN [Concomitant]
     Dosage: UNK
  2. CLARITIN [Concomitant]
     Dosage: UNK
  3. TEKTURNA [Suspect]
     Dosage: 1 DF, QD
     Route: 048
  4. TAPIOCA PUDDING [Suspect]
     Dosage: UNK

REACTIONS (3)
  - HYPERCHLORHYDRIA [None]
  - MALAISE [None]
  - NAUSEA [None]
